FAERS Safety Report 6073343-6 (Version None)
Quarter: 2009Q1

REPORT INFORMATION
  Report Type: 
  Country: None (occurrence: None)
  Receive Date: 20090211
  Receipt Date: 20090203
  Transmission Date: 20090719
  Serious: Yes (Hospitalization)
  Sender: FDA-Public Use
  Company Number: PHHY2009FR04064

PATIENT
  Sex: Male

DRUGS (2)
  1. TASIGNA [Suspect]
  2. GLEEVEC [Suspect]

REACTIONS (2)
  - MICTURITION DISORDER [None]
  - PAIN [None]
